FAERS Safety Report 15612804 (Version 1)
Quarter: 2018Q4

REPORT INFORMATION
  Report Type: Spontaneous
  Country: CN (occurrence: CN)
  Receive Date: 20181113
  Receipt Date: 20181113
  Transmission Date: 20190205
  Serious: Yes (Other)
  Sender: FDA-Public Use
  Company Number: CN-MYLANLABS-2018M1085695

PATIENT
  Age: 7 Decade
  Sex: Female

DRUGS (11)
  1. DOCETAXEL. [Concomitant]
     Active Substance: DOCETAXEL
     Indication: INTRADUCTAL PROLIFERATIVE BREAST LESION
     Dosage: THE WOMAN RECEIVED 6 CYCLES OF CHEMOTHERAPY WITH DOCETAXEL
     Route: 065
     Dates: start: 201502
  2. FRUCTOSE [Concomitant]
     Active Substance: FRUCTOSE
     Indication: PRODUCT USED FOR UNKNOWN INDICATION
     Route: 065
  3. TRASTUZUMAB. [Suspect]
     Active Substance: TRASTUZUMAB
     Dosage: AS MAINTENANCE THERAPY
     Route: 065
  4. LAPATINIB [Suspect]
     Active Substance: LAPATINIB
     Indication: INTRADUCTAL PROLIFERATIVE BREAST LESION
     Route: 065
  5. TRASTUZUMAB. [Suspect]
     Active Substance: TRASTUZUMAB
     Indication: INTRADUCTAL PROLIFERATIVE BREAST LESION
     Route: 065
     Dates: start: 201502
  6. CYCLOPHOSPHAMIDE. [Concomitant]
     Active Substance: CYCLOPHOSPHAMIDE
     Indication: INTRADUCTAL PROLIFERATIVE BREAST LESION
     Dosage: THE WOMAN RECEIVED 6 CYCLES OF CHEMOTHERAPY WITH CYCLOPHOSPHAMIDE
     Route: 065
     Dates: start: 201502
  7. ERLOTINIB [Suspect]
     Active Substance: ERLOTINIB
     Indication: INTRADUCTAL PROLIFERATIVE BREAST LESION
     Route: 065
  8. ERLOTINIB [Suspect]
     Active Substance: ERLOTINIB
     Dosage: AS MAINTENANCE THERAPY
     Route: 065
  9. MANNITOL. [Concomitant]
     Active Substance: MANNITOL
     Indication: PRODUCT USED FOR UNKNOWN INDICATION
     Route: 065
  10. GEMCITABINE [Suspect]
     Active Substance: GEMCITABINE\GEMCITABINE HYDROCHLORIDE
     Indication: INTRADUCTAL PROLIFERATIVE BREAST LESION
     Route: 065
  11. GLYCEROL [Concomitant]
     Active Substance: GLYCERIN
     Indication: PRODUCT USED FOR UNKNOWN INDICATION
     Route: 065

REACTIONS (3)
  - Drug ineffective [Unknown]
  - Cardiotoxicity [Unknown]
  - Rash [Unknown]
